FAERS Safety Report 5376333-1 (Version None)
Quarter: 2007Q3

REPORT INFORMATION
  Report Type: 
  Country: None (occurrence: None)
  Receive Date: 20070702
  Receipt Date: 20070621
  Transmission Date: 20080115
  Serious: Yes (Hospitalization)
  Sender: FDA-Public Use
  Company Number: FR-PFIZER INC-2007041090

PATIENT
  Age: 78 Year
  Sex: Female

DRUGS (6)
  1. ATORVASTATIN CALCIUM [Suspect]
     Dosage: DAILY DOSE:80MG
     Route: 048
  2. ATENOLOL [Suspect]
     Route: 048
  3. TRIATEC [Suspect]
     Route: 048
     Dates: start: 20061115, end: 20070115
  4. ASPIRIN [Suspect]
     Dosage: DAILY DOSE:160MG
     Route: 048
  5. PLAVIX [Suspect]
     Dosage: TEXT:1 DF
     Route: 048
     Dates: start: 20061115, end: 20070115
  6. NEXIUM [Concomitant]
     Route: 048

REACTIONS (2)
  - COUGH [None]
  - EOSINOPHILIC PNEUMONIA [None]
